FAERS Safety Report 10730166 (Version 1)
Quarter: 2015Q1

REPORT INFORMATION
  Report Type: Spontaneous
  Country: IT (occurrence: IT)
  Receive Date: 20150122
  Receipt Date: 20150122
  Transmission Date: 20150721
  Serious: Yes (Hospitalization)
  Sender: FDA-Public Use
  Company Number: IT-BAYER-2015-009703

PATIENT
  Age: 77 Year
  Sex: Male

DRUGS (7)
  1. MICROSER [Concomitant]
     Dosage: UNK
  2. CARDIOASPIRIN [Suspect]
     Active Substance: ASPIRIN
     Indication: ATRIAL FIBRILLATION
     Dosage: DAILY DOSE 100 MG
     Route: 048
     Dates: start: 20130101, end: 20150102
  3. OMEPRAZOLE. [Concomitant]
     Active Substance: OMEPRAZOLE
     Dosage: DAILY DOSE 20 MG
     Route: 030
  4. CATAPRES-TTS [Concomitant]
     Active Substance: CLONIDINE
     Dosage: UNK
  5. VASCOMAN [Concomitant]
     Active Substance: MANIDIPINE HYDROCHLORIDE
     Dosage: DAILY DOSE 20 MG
  6. NOVONORM [Concomitant]
     Active Substance: REPAGLINIDE
     Dosage: DAILY DOSE 4 MG
     Route: 048
  7. RYTMONORM [Concomitant]
     Active Substance: PROPAFENONE
     Dosage: DAILY DOSE 650 MG

REACTIONS (3)
  - Haematemesis [Recovering/Resolving]
  - Gastric disorder [Recovering/Resolving]
  - Melaena [Recovering/Resolving]

NARRATIVE: CASE EVENT DATE: 20150102
